FAERS Safety Report 9012501 (Version 1)
Quarter: 2013Q1

REPORT INFORMATION
  Report Type: Spontaneous
  Country: US (occurrence: US)
  Receive Date: 20130114
  Receipt Date: 20130114
  Transmission Date: 20140127
  Serious: No
  Sender: FDA-Public Use
  Company Number: US-PFIZER INC-2013009547

PATIENT
  Age: 89 Year
  Sex: Female
  Weight: 50.79 kg

DRUGS (3)
  1. ZYVOX [Suspect]
     Indication: ENTEROCOCCAL INFECTION
     Dosage: UNK, 2X/DAY
     Route: 048
     Dates: start: 201301, end: 20130107
  2. NAMENDA [Concomitant]
     Dosage: UNK
  3. HALDOL [Concomitant]
     Dosage: UNK

REACTIONS (2)
  - Pyrexia [Unknown]
  - Dizziness [Unknown]
